FAERS Safety Report 24598861 (Version 5)
Quarter: 2025Q3

REPORT INFORMATION
  Report Type: Spontaneous
  Country: JP (occurrence: JP)
  Receive Date: 20241110
  Receipt Date: 20250809
  Transmission Date: 20251020
  Serious: Yes (Hospitalization, Other)
  Sender: ALEXION PHARMACEUTICALS
  Company Number: JP-ASTRAZENECA-240118556_013820_P_1

PATIENT
  Age: 83 Year
  Sex: Female
  Weight: 47 kg

DRUGS (14)
  1. CALQUENCE [Suspect]
     Active Substance: ACALABRUTINIB
     Indication: Chronic lymphocytic leukaemia
     Dosage: 100 MILLIGRAM, BID
     Dates: start: 20240913, end: 20241022
  2. CALQUENCE [Suspect]
     Active Substance: ACALABRUTINIB
     Dosage: 3 DAYS/WEEK
     Dates: start: 20240907, end: 20240912
  3. CALQUENCE [Suspect]
     Active Substance: ACALABRUTINIB
     Dosage: 4 DAYS/WEEK
     Dates: start: 20241023, end: 20241030
  4. CALQUENCE [Suspect]
     Active Substance: ACALABRUTINIB
     Dosage: 100 MILLIGRAM, QW
     Dates: start: 20241206
  5. URAPIDIL [Suspect]
     Active Substance: URAPIDIL
     Indication: Urinary retention
     Dosage: 30 MILLIGRAM, BID
     Dates: start: 20241017
  6. BETHANECHOL CHLORIDE [Suspect]
     Active Substance: BETHANECHOL CHLORIDE
     Indication: Urinary retention
     Dosage: 15 MILLIGRAM, TID
     Dates: start: 20241021
  7. BETHANECHOL CHLORIDE [Suspect]
     Active Substance: BETHANECHOL CHLORIDE
     Dosage: 15 MILLIGRAM, BID
     Dates: start: 20241017, end: 20241020
  8. DIPHENIDOL HYDROCHLORIDE [Suspect]
     Active Substance: DIPHENIDOL HYDROCHLORIDE
     Indication: Dizziness
     Dosage: 25 MILLIGRAM, TID
     Dates: start: 20241011
  9. FAMOTIDINE [Concomitant]
     Active Substance: FAMOTIDINE
     Indication: Gastric ulcer
     Dosage: 20 MILLIGRAM, QD
     Dates: start: 20241011, end: 20241108
  10. FEBUXOSTAT [Concomitant]
     Active Substance: FEBUXOSTAT
     Indication: Hyperuricaemia
     Dosage: 60 MILLIGRAM, QD
     Dates: start: 20240906, end: 20240908
  11. FEBUXOSTAT [Concomitant]
     Active Substance: FEBUXOSTAT
     Dosage: 40 MILLIGRAM, QD
     Dates: start: 20241011, end: 20241108
  12. AMLODIPINE [Concomitant]
     Active Substance: AMLODIPINE BESYLATE
     Indication: Hypertension
     Dosage: 5 MILLIGRAM, QD
  13. AMLODIPINE [Concomitant]
     Active Substance: AMLODIPINE BESYLATE
  14. DIOVAN [Concomitant]
     Active Substance: VALSARTAN
     Indication: Hypertension
     Dosage: 80 MILLIGRAM, QD
     Dates: start: 20241016, end: 20241108

REACTIONS (3)
  - Urinary retention [Recovering/Resolving]
  - Dizziness [Recovered/Resolved]
  - Postrenal failure [Recovered/Resolved]

NARRATIVE: CASE EVENT DATE: 20241011
